FAERS Safety Report 8898578 (Version 1)
Quarter: 2012Q4

REPORT INFORMATION
  Report Type: 
  Country: US (occurrence: US)
  Receive Date: 20121108
  Receipt Date: 20121108
  Transmission Date: 20130627
  Serious: No
  Sender: FDA-Public Use
  Company Number: US-AMGEN-USASP2012031308

PATIENT
  Age: 24 Year
  Sex: Male
  Weight: 72.56 kg

DRUGS (4)
  1. ENBREL [Suspect]
     Indication: ANKYLOSING SPONDYLITIS
     Dosage: 50 mg, qwk
     Route: 058
  2. PREDNISONE [Concomitant]
     Dosage: 10 mg, UNK
     Route: 048
  3. TRAMADOL HCL [Concomitant]
     Dosage: 50 mg, UNK
     Route: 048
  4. MULTIVITAMIN                       /00097801/ [Concomitant]

REACTIONS (1)
  - Upper respiratory tract infection [Unknown]
